FAERS Safety Report 16197281 (Version 3)
Quarter: 2019Q2

REPORT INFORMATION
  Report Type: Spontaneous
  Country: US (occurrence: US)
  Receive Date: 20190415
  Receipt Date: 20190624
  Transmission Date: 20190711
  Serious: Yes (Hospitalization)
  Sender: FDA-Public Use
  Company Number: US-PFIZER INC-2019159942

PATIENT
  Age: 62 Year
  Sex: Female

DRUGS (11)
  1. LEVOTHYROXINE. [Concomitant]
     Active Substance: LEVOTHYROXINE
     Dosage: 50 UG, 1X/DAY
  2. CELEBREX [Suspect]
     Active Substance: CELECOXIB
     Indication: SCIATICA
  3. LYRICA [Suspect]
     Active Substance: PREGABALIN
     Indication: RAYNAUD^S PHENOMENON
     Dosage: 75 MG, 2X/DAY
  4. LYRICA [Suspect]
     Active Substance: PREGABALIN
     Indication: NEURALGIA
     Dosage: UNK (1-2 DF)
  5. IRON [Concomitant]
     Active Substance: IRON
     Dosage: UNK
  6. LYRICA [Suspect]
     Active Substance: PREGABALIN
     Indication: TREMOR
  7. CELEBREX [Suspect]
     Active Substance: CELECOXIB
     Indication: RAYNAUD^S PHENOMENON
     Dosage: 200 MG, 2X/DAY
  8. LYRICA [Suspect]
     Active Substance: PREGABALIN
     Indication: SCIATICA
     Dosage: 100 MG, UNK
  9. CELEBREX [Suspect]
     Active Substance: CELECOXIB
     Indication: NEURALGIA
  10. CELEBREX [Suspect]
     Active Substance: CELECOXIB
     Indication: TREMOR
  11. OMEPRAZOLE. [Concomitant]
     Active Substance: OMEPRAZOLE
     Dosage: 20 MG, 2X/DAY

REACTIONS (1)
  - Pain [Not Recovered/Not Resolved]
